FAERS Safety Report 10211700 (Version 1)
Quarter: 2014Q2

REPORT INFORMATION
  Report Type: Spontaneous
  Country: US (occurrence: US)
  Receive Date: 20140602
  Receipt Date: 20140602
  Transmission Date: 20141212
  Serious: No
  Sender: FDA-Public Use
  Company Number: US-009507513-1406USA000650

PATIENT
  Age: 25 Year
  Sex: Female

DRUGS (5)
  1. MIRALAX [Suspect]
     Indication: CONSTIPATION
     Dosage: 12.75 G, QD
     Route: 048
     Dates: start: 201206
  2. DEPAKOTE [Concomitant]
     Indication: CEREBRAL PALSY
     Dosage: UNK, UNKNOWN
  3. KLONOPIN [Concomitant]
     Indication: EPILEPSY
     Dosage: UNK, UNKNOWN
  4. PRILOSEC [Concomitant]
     Indication: GASTROOESOPHAGEAL REFLUX DISEASE
     Dosage: UNK, UNKNOWN
  5. VITAMIN D (UNSPECIFIED) [Concomitant]
     Indication: PRODUCT USED FOR UNKNOWN INDICATION
     Dosage: UNK, UNKNOWN

REACTIONS (4)
  - Incorrect drug administration duration [Unknown]
  - Underdose [Unknown]
  - Off label use [Unknown]
  - Product quality issue [Unknown]
